FAERS Safety Report 4724707-1 (Version None)
Quarter: 2005Q3

REPORT INFORMATION
  Report Type: 
  Country: None (occurrence: None)
  Receive Date: 20050720
  Receipt Date: 20050720
  Transmission Date: 20060218
  Serious: Yes (Life-Threatening, Hospitalization, Other)
  Sender: FDA-Public Use
  Company Number: None

PATIENT
  Age: 45 Year
  Sex: Female
  Weight: 108.8633 kg

DRUGS (3)
  1. MARCAINE [Suspect]
  2. DEPO-MEDROL [Suspect]
  3. IODAZE [Suspect]

REACTIONS (6)
  - CEREBROVASCULAR ACCIDENT [None]
  - DISCOMFORT [None]
  - FEELING HOT [None]
  - HICCUPS [None]
  - NAUSEA [None]
  - TRANSIENT ISCHAEMIC ATTACK [None]
